FAERS Safety Report 7933283-1 (Version None)
Quarter: 2011Q4

REPORT INFORMATION
  Report Type: 
  Country: None (occurrence: None)
  Receive Date: 20111121
  Receipt Date: 20111121
  Transmission Date: 20120403
  Serious: Yes (Other)
  Sender: FDA-Public Use
  Company Number: None

PATIENT
  Sex: Male
  Weight: 56.6996 kg

DRUGS (1)
  1. SIMVASTATIN [Suspect]
     Indication: BLOOD CHOLESTEROL
     Dosage: 1 40 MG PILL ONCE DAILY BY MOUTH
     Route: 048
     Dates: start: 20110115, end: 20110315

REACTIONS (3)
  - LETHARGY [None]
  - FEAR [None]
  - MUSCULAR WEAKNESS [None]
